FAERS Safety Report 5702922-8 (Version None)
Quarter: 2008Q2

REPORT INFORMATION
  Report Type: 
  Country: None (occurrence: None)
  Receive Date: 20080411
  Receipt Date: 20080403
  Transmission Date: 20081010
  Serious: Yes (Other)
  Sender: FDA-Public Use
  Company Number: US-MERCK-0804USA01168

PATIENT
  Age: 6 Year
  Sex: Male

DRUGS (6)
  1. SINGULAIR [Suspect]
     Indication: ASTHMA
     Route: 048
     Dates: start: 20050101
  2. SINGULAIR [Suspect]
     Route: 048
     Dates: end: 20080401
  3. FLOVENT [Concomitant]
     Route: 065
     Dates: start: 20050701
  4. NASONEX [Concomitant]
     Route: 065
  5. ALBUTEROL [Concomitant]
     Route: 065
  6. FEXOFENADINE HYDROCHLORIDE [Concomitant]
     Route: 065

REACTIONS (3)
  - ANGER [None]
  - MOOD SWINGS [None]
  - SUICIDAL IDEATION [None]
